FAERS Safety Report 8815047 (Version 2)
Quarter: 2012Q4

REPORT INFORMATION
  Report Type: 
  Country: US (occurrence: US)
  Receive Date: 20120928
  Receipt Date: 20121105
  Transmission Date: 20130627
  Serious: No
  Sender: FDA-Public Use
  Company Number: US-PFIZER INC-2012239226

PATIENT
  Age: 55 Year
  Sex: Male
  Weight: 97.5 kg

DRUGS (7)
  1. CELEBREX [Suspect]
     Indication: OSTEOARTHRITIS
     Dosage: 200 mg, Daily
     Route: 048
     Dates: start: 2011
  2. IBUPROFEN [Suspect]
     Indication: JOINT PAIN
     Dosage: UNK
  3. VOLTAREN [Suspect]
     Indication: JOINT PAIN
     Dosage: 75 mg, 2x/day
     Dates: start: 20120810
  4. MOBIC [Suspect]
     Indication: JOINT PAIN
     Dosage: 15 mg, 3x/day
     Dates: start: 20120519
  5. BENICAR [Concomitant]
     Indication: BLOOD PRESSURE HIGH
     Dosage: UNK, daily
     Route: 048
  6. SINGULAIR [Concomitant]
     Indication: ALLERGY
     Dosage: UNK, daily
     Route: 048
  7. FLONASE [Concomitant]
     Indication: ALLERGY
     Dosage: two sprays daily in each nostril
     Route: 045

REACTIONS (3)
  - Pain [Unknown]
  - Abdominal discomfort [Recovered/Resolved]
  - Drug ineffective [Unknown]
